FAERS Safety Report 4305271-8 (Version None)
Quarter: 2004Q1

REPORT INFORMATION
  Report Type: 
  Country: None (occurrence: None)
  Receive Date: 20040226
  Receipt Date: 20030121
  Transmission Date: 20041129
  Serious: No
  Sender: FDA-Public Use
  Company Number: US-BRISTOL-MYERS SQUIBB COMPANY-12163408

PATIENT
  Age: 56 Year
  Sex: Male

DRUGS (4)
  1. TAXOL [Suspect]
     Indication: LUNG NEOPLASM MALIGNANT
     Route: 042
     Dates: start: 20030116, end: 20030116
  2. CARBOPLATIN [Concomitant]
  3. BENADRYL [Concomitant]
     Indication: PREMEDICATION
     Dates: start: 20030116
  4. DECADRON [Concomitant]
     Indication: PREMEDICATION
     Dates: start: 20030116

REACTIONS (1)
  - APPLICATION SITE ANAESTHESIA [None]
